FAERS Safety Report 7778189 (Version 4)
Quarter: 2012Q4

REPORT INFORMATION
  Report Type: 
  Country: US (occurrence: US)
  Receive Date: 20110128
  Receipt Date: 20121214
  Transmission Date: 20130627
  Serious: Yes (Hospitalization)
  Sender: FDA-Public Use
  Company Number: US-BAYER-2010-004336

PATIENT
  Age: 23 Year
  Sex: Female
  Weight: 54.42 kg

DRUGS (10)
  1. YAZ [Suspect]
     Indication: CONTRACEPTION
     Dosage: UNK
     Dates: start: 20070220, end: 201006
  2. YAZ [Suspect]
     Indication: MENSTRUAL DISORDER
  3. YAZ [Suspect]
     Indication: PAIN
  4. YAZ [Suspect]
     Indication: HEADACHE
  5. YAZ [Suspect]
     Indication: DYSMENORRHEA
  6. GIANVI [Suspect]
     Dosage: UNK
     Dates: start: 201007, end: 201010
  7. MVI [Concomitant]
     Dosage: UNK
     Dates: start: 20100924
  8. CEFUROXIME [Concomitant]
     Dosage: 250 mg, UNK
     Dates: start: 20101019
  9. LORATADINE [Concomitant]
     Dosage: 10 mg, daily
     Route: 048
  10. MOTRIN [Concomitant]
     Dosage: UNK UNK, PRN
     Dates: start: 2002

REACTIONS (2)
  - Deep vein thrombosis [None]
  - Oedema peripheral [None]
